FAERS Safety Report 15830745 (Version 1)
Quarter: 2019Q1

REPORT INFORMATION
  Report Type: Report from Study
  Country: None (occurrence: US)
  Receive Date: 20190116
  Receipt Date: 20190116
  Transmission Date: 20190417
  Serious: Yes (Other)
  Sender: FDA-Public Use
  Company Number: US-ABBVIE-18K-163-2414959-00

PATIENT
  Age: 66 Year
  Sex: Female

DRUGS (2)
  1. HUMIRA [Suspect]
     Active Substance: ADALIMUMAB
     Route: 058
     Dates: start: 201809
  2. HUMIRA [Suspect]
     Active Substance: ADALIMUMAB
     Indication: PSORIATIC ARTHROPATHY
     Route: 058
     Dates: start: 20180622, end: 201808

REACTIONS (15)
  - Rhinorrhoea [Not Recovered/Not Resolved]
  - Drug ineffective [Not Recovered/Not Resolved]
  - Pain [Recovered/Resolved]
  - Injection site pain [Recovered/Resolved]
  - Sinus headache [Not Recovered/Not Resolved]
  - Salivary gland enlargement [Recovering/Resolving]
  - Joint swelling [Recovering/Resolving]
  - Post-traumatic pain [Recovering/Resolving]
  - Loss of personal independence in daily activities [Unknown]
  - Hyporeflexia [Not Recovered/Not Resolved]
  - Arthralgia [Recovering/Resolving]
  - Salivary hypersecretion [Not Recovered/Not Resolved]
  - Joint stiffness [Recovering/Resolving]
  - Wrong technique in product usage process [Unknown]
  - Fall [Unknown]

NARRATIVE: CASE EVENT DATE: 20180622
